FAERS Safety Report 24381755 (Version 1)
Quarter: 2024Q4

REPORT INFORMATION
  Report Type: Spontaneous
  Country: US (occurrence: US)
  Receive Date: 20241001
  Receipt Date: 20241001
  Transmission Date: 20250115
  Serious: No
  Sender: ACCORD
  Company Number: US-Accord-428205

PATIENT
  Age: 13 Year
  Sex: Female

DRUGS (1)
  1. NALTREXONE HYDROCHLORIDE [Suspect]
     Active Substance: NALTREXONE HYDROCHLORIDE
     Dosage: CRUSHED AND MIXED WITH 400MLS WATER; NIGHTLY DOSES OF 0.5 TO?4.5MG

REACTIONS (1)
  - Intercepted product prescribing error [Unknown]
